FAERS Safety Report 9164546 (Version 1)
Quarter: 2013Q1

REPORT INFORMATION
  Report Type: Spontaneous
  Country: FR (occurrence: None)
  Receive Date: 20130221
  Receipt Date: 20130221
  Transmission Date: 20140127
  Serious: Yes (Hospitalization)
  Sender: FDA-Public Use
  Company Number: FK201300537

PATIENT
  Age: 57 Year
  Sex: Male

DRUGS (4)
  1. GEMCITABINE [Suspect]
     Indication: NEUROENDOCRINE CARCINOMA METASTATIC
     Dosage: CYCLICAL
     Route: 042
     Dates: start: 201211, end: 20121217
  2. OXALIPLATIN (OXALIPLATIN) [Concomitant]
  3. ONDANSETRON (ONDANSETRON) [Concomitant]
  4. METHYLPREDNISOLONE (METHYLPREDNISOLONE) [Concomitant]

REACTIONS (6)
  - Generalised oedema [None]
  - Cardiac failure [None]
  - Sinus tachycardia [None]
  - Cardiac failure congestive [None]
  - Cardiomyopathy [None]
  - Ejection fraction decreased [None]
